FAERS Safety Report 8702719 (Version 2)
Quarter: 2012Q4

REPORT INFORMATION
  Report Type: Report from Study
  Country: DE (occurrence: DE)
  Receive Date: 20120803
  Receipt Date: 20121204
  Transmission Date: 20130627
  Serious: Yes (Other)
  Sender: FDA-Public Use
  Company Number: DE-ROCHE-1095663

PATIENT
  Age: 46 Year
  Sex: Female

DRUGS (5)
  1. TRASTUZUMAB [Suspect]
     Indication: BREAST CANCER
     Route: 042
     Dates: start: 20100514, end: 20110211
  2. TRASTUZUMAB [Suspect]
     Route: 042
     Dates: end: 200809
  3. ZOMETA [Concomitant]
     Indication: BREAST CANCER METASTATIC
     Route: 042
     Dates: start: 20100514, end: 20120601
  4. FEMARA [Concomitant]
     Indication: BREAST CANCER METASTATIC
     Route: 048
     Dates: start: 20100505, end: 20110303
  5. DOCETAXEL [Concomitant]
     Indication: BREAST CANCER METASTATIC

REACTIONS (1)
  - Left ventricular dysfunction [Not Recovered/Not Resolved]
